FAERS Safety Report 10166061 (Version 2)
Quarter: 2017Q3

REPORT INFORMATION
  Report Type: Spontaneous
  Country: US (occurrence: US)
  Receive Date: 20140512
  Receipt Date: 20170817
  Transmission Date: 20171127
  Serious: Yes (Other)
  Sender: FDA-Public Use
  Company Number: US-009507513-1405USA004068

PATIENT
  Age: 25 Year
  Sex: Female
  Weight: 81.63 kg

DRUGS (1)
  1. NEXPLANON [Suspect]
     Active Substance: ETONOGESTREL
     Indication: CONTRACEPTION
     Dosage: 1 ROD FOR 3 YEARS IN LEFT ARM
     Route: 059
     Dates: start: 20131103

REACTIONS (13)
  - Abdominal distension [Unknown]
  - Incorrect drug administration duration [Unknown]
  - Pregnancy with implant contraceptive [Unknown]
  - Peripheral swelling [Unknown]
  - Weight increased [Unknown]
  - Menstrual disorder [Unknown]
  - Metrorrhagia [Unknown]
  - Arthralgia [Unknown]
  - Headache [Unknown]
  - Hypomenorrhoea [Unknown]
  - Nausea [Unknown]
  - Back pain [Unknown]
  - Unintended pregnancy [Unknown]

NARRATIVE: CASE EVENT DATE: 201401
